FAERS Safety Report 5814890-9 (Version None)
Quarter: 2008Q3

REPORT INFORMATION
  Report Type: 
  Country: None (occurrence: None)
  Receive Date: 20080718
  Receipt Date: 20080705
  Transmission Date: 20090109
  Serious: Yes (Hospitalization, Other)
  Sender: FDA-Public Use
  Company Number: US-ELI_LILLY_AND_COMPANY-US200807001211

PATIENT
  Sex: Female

DRUGS (2)
  1. CYMBALTA [Suspect]
     Indication: BIPOLAR DISORDER
  2. AMBIEN [Concomitant]

REACTIONS (3)
  - DRUG INTERACTION [None]
  - OVARIAN CANCER [None]
  - SUICIDE ATTEMPT [None]
